FAERS Safety Report 9144568 (Version 1)
Quarter: 2013Q1

REPORT INFORMATION
  Report Type: Spontaneous
  Country: JP (occurrence: JP)
  Receive Date: 20130306
  Receipt Date: 20130306
  Transmission Date: 20140127
  Serious: Yes (Other)
  Sender: FDA-Public Use
  Company Number: JP-PFIZER INC-2013073892

PATIENT
  Age: 39 Year
  Sex: Female

DRUGS (1)
  1. ZITHROMAC [Suspect]
     Dosage: 500 MG, 1X/DAY
     Route: 048

REACTIONS (1)
  - Enterocolitis haemorrhagic [Unknown]
